FAERS Safety Report 10023871 (Version 1)
Quarter: 2014Q1

REPORT INFORMATION
  Report Type: Spontaneous
  Country: FR (occurrence: FR)
  Receive Date: 20140320
  Receipt Date: 20140320
  Transmission Date: 20141002
  Serious: Yes (Death, Hospitalization)
  Sender: FDA-Public Use
  Company Number: FR-SA-2014SA033643

PATIENT
  Age: 83 Year
  Sex: Male

DRUGS (15)
  1. TAVANIC [Suspect]
     Indication: PRODUCT USED FOR UNKNOWN INDICATION
     Route: 048
     Dates: start: 20131101, end: 20131226
  2. RIFADINE [Suspect]
     Indication: PRODUCT USED FOR UNKNOWN INDICATION
     Route: 048
     Dates: start: 20131101, end: 20131227
  3. ZECLAR [Suspect]
     Indication: PRODUCT USED FOR UNKNOWN INDICATION
     Route: 048
     Dates: start: 20131113, end: 20140110
  4. MOPRAL [Suspect]
     Indication: PRODUCT USED FOR UNKNOWN INDICATION
     Route: 048
     Dates: end: 20140112
  5. COLCHIMAX [Suspect]
     Indication: PRODUCT USED FOR UNKNOWN INDICATION
     Route: 048
     Dates: start: 20131123, end: 20140112
  6. PREVISCAN [Suspect]
     Indication: PRODUCT USED FOR UNKNOWN INDICATION
     Route: 048
     Dates: end: 20140114
  7. CALCIDOSE [Concomitant]
  8. MIMPARA [Concomitant]
  9. AMLOR [Concomitant]
  10. RISORDAN [Concomitant]
  11. PLAVIX [Concomitant]
  12. TAHOR [Concomitant]
  13. CORDARONE [Concomitant]
  14. LASILIX [Concomitant]
  15. SYMBICORT [Concomitant]

REACTIONS (1)
  - Pancytopenia [Fatal]
